FAERS Safety Report 5333241-X (Version None)
Quarter: 2007Q1

REPORT INFORMATION
  Report Type: 
  Country: None (occurrence: None)
  Receive Date: 20070306
  Receipt Date: 20061115
  Transmission Date: 20070707
  Serious: Yes (Other)
  Sender: FDA-Public Use
  Company Number: A03200606879

PATIENT
  Age: 71 Year
  Sex: Female

DRUGS (7)
  1. PLAVIX [Suspect]
     Dosage: 75 MG QD - ORAL
     Route: 048
     Dates: start: 20051101, end: 20061115
  2. PHENYTOIN SODIUM [Concomitant]
  3. GUAIFENESIN [Concomitant]
  4. FOSINOPRIL SODIUM [Concomitant]
  5. FUROSEMIDE [Concomitant]
  6. DIGOXIN [Concomitant]
  7. THEOPHYLLINE [Concomitant]

REACTIONS (1)
  - SWOLLEN TONGUE [None]
